FAERS Safety Report 8906070 (Version 1)
Quarter: 2012Q4

REPORT INFORMATION
  Report Type: 
  Country: CH (occurrence: CH)
  Receive Date: 20121110
  Receipt Date: 20121110
  Transmission Date: 20130627
  Serious: Yes (Hospitalization)
  Sender: FDA-Public Use
  Company Number: CH-009507513-1211CHE001528

PATIENT
  Age: 58 Year
  Sex: Male

DRUGS (3)
  1. NASONEX [Suspect]
     Indication: RHINITIS ALLERGIC
     Dosage: 2 times 2 actuations per nostril, bid
     Route: 045
     Dates: start: 2007
  2. SIMVASTATIN [Concomitant]
     Indication: HYPERCHOLESTEROLAEMIA
     Dosage: 40 mg, qd
     Route: 048
     Dates: start: 2007
  3. LORATADINE [Concomitant]
     Indication: RHINITIS ALLERGIC
     Dosage: 10 mg, qd
     Route: 048
     Dates: start: 2007

REACTIONS (1)
  - Atrial fibrillation [Recovered/Resolved with Sequelae]
